FAERS Safety Report 13607485 (Version 1)
Quarter: 2017Q2

REPORT INFORMATION
  Report Type: Spontaneous
  Country: US (occurrence: US)
  Receive Date: 20170602
  Receipt Date: 20170602
  Transmission Date: 20170830
  Serious: No
  Sender: FDA-Public Use
  Company Number: US-GLAXOSMITHKLINE-US2017080668

PATIENT
  Age: 68 Year
  Sex: Male

DRUGS (1)
  1. VOLTAREN [Suspect]
     Active Substance: DICLOFENAC SODIUM
     Indication: INFLAMMATION
     Dosage: 1 G, BID
     Dates: start: 201612

REACTIONS (3)
  - Off label use [Unknown]
  - Drug administered at inappropriate site [Unknown]
  - Product use issue [Unknown]
